FAERS Safety Report 16862849 (Version 3)
Quarter: 2020Q2

REPORT INFORMATION
  Report Type: Spontaneous
  Country: CO (occurrence: CO)
  Receive Date: 20190927
  Receipt Date: 20200604
  Transmission Date: 20200713
  Serious: Yes (Other)
  Sender: FDA-Public Use
  Company Number: CO-PFIZER INC-2019166581

PATIENT
  Age: 60 Year
  Sex: Female

DRUGS (3)
  1. REAMPLA [Suspect]
     Active Substance: PALBOCICLIB
     Dosage: 125 MG
     Route: 048
     Dates: start: 201911
  2. FULVESTRANT. [Concomitant]
     Active Substance: FULVESTRANT
     Dosage: UNK
  3. REAMPLA [Suspect]
     Active Substance: PALBOCICLIB
     Indication: BREAST CANCER METASTATIC
     Dosage: 125 MG
     Route: 048

REACTIONS (6)
  - Thrombosis in device [Unknown]
  - Procedural pain [Not Recovered/Not Resolved]
  - Neoplasm progression [Not Recovered/Not Resolved]
  - Mass [Not Recovered/Not Resolved]
  - Feeling of despair [Unknown]
  - Acne [Recovered/Resolved]

NARRATIVE: CASE EVENT DATE: 201911
